FAERS Safety Report 4675904-5 (Version None)
Quarter: 2005Q2

REPORT INFORMATION
  Report Type: 
  Country: None (occurrence: None)
  Receive Date: 20050527
  Receipt Date: 20050517
  Transmission Date: 20051028
  Serious: Yes (Death, Life-Threatening, Hospitalization)
  Sender: FDA-Public Use
  Company Number: JP-JNJFOC-20040905210

PATIENT
  Sex: Male
  Weight: 59 kg

DRUGS (9)
  1. REMICADE [Suspect]
     Indication: CROHN'S DISEASE
     Route: 042
  2. SOLU-CORTEF [Suspect]
     Indication: CROHN'S DISEASE
     Route: 042
  3. SOLU-MEDROL [Concomitant]
     Indication: CROHN'S DISEASE
     Route: 042
  4. DEPAS [Concomitant]
  5. LUVOX [Concomitant]
  6. GASTER [Concomitant]
  7. LEXOTAN [Concomitant]
  8. SOLUTIONS FOR PARENTERAL NUTRITION [Concomitant]
     Dates: start: 20040226, end: 20040702
  9. PREDONINE [Concomitant]
     Indication: CROHN'S DISEASE
     Route: 049
     Dates: start: 20040312

REACTIONS (5)
  - ACUTE RESPIRATORY DISTRESS SYNDROME [None]
  - CANDIDA PNEUMONIA [None]
  - CANDIDIASIS [None]
  - MULTI-ORGAN FAILURE [None]
  - PNEUMONIA [None]
